APPROVED DRUG PRODUCT: METHOTREXATE SODIUM
Active Ingredient: METHOTREXATE SODIUM
Strength: EQ 2.5MG BASE
Dosage Form/Route: TABLET;ORAL
Application: A201749 | Product #001 | TE Code: AB
Applicant: SUN PHARMACEUTICAL INDUSTRIES LTD
Approved: May 21, 2015 | RLD: No | RS: No | Type: RX